FAERS Safety Report 5200799-0 (Version None)
Quarter: 2006Q4

REPORT INFORMATION
  Report Type: 
  Country: None (occurrence: None)
  Receive Date: 20061016
  Receipt Date: 20060901
  Transmission Date: 20070319
  Serious: No
  Sender: FDA-Public Use
  Company Number: 2006SP003174

PATIENT
  Age: 69 Year
  Sex: Female
  Weight: 87.5442 kg

DRUGS (9)
  1. LUNESTA [Suspect]
     Indication: INSOMNIA
     Dosage: 3 MG; ORAL
     Route: 048
     Dates: start: 20060725, end: 20060802
  2. ASTELIN [Concomitant]
  3. BENICAR [Concomitant]
  4. PAXIL [Concomitant]
  5. PANTOPRAZOLE SODIUM [Concomitant]
  6. VITAMIN B-12 [Concomitant]
  7. CALCIUM [Concomitant]
  8. METOPROLOL SUCCINATE [Concomitant]
  9. LOVASTATIN [Concomitant]

REACTIONS (2)
  - HALLUCINATION [None]
  - INSOMNIA [None]
